FAERS Safety Report 16397843 (Version 1)
Quarter: 2019Q2

REPORT INFORMATION
  Report Type: Report from Study
  Country: US (occurrence: US)
  Receive Date: 20190606
  Receipt Date: 20190606
  Transmission Date: 20190711
  Serious: Yes (Other)
  Sender: FDA-Public Use
  Company Number: PHEH2019US023115

PATIENT
  Sex: Male

DRUGS (2)
  1. LISINOPRIL. [Interacting]
     Active Substance: LISINOPRIL
     Indication: PRODUCT USED FOR UNKNOWN INDICATION
     Dosage: UNK
     Route: 065
  2. ENTRESTO [Suspect]
     Active Substance: SACUBITRIL\VALSARTAN
     Indication: CARDIAC FAILURE
     Dosage: 1 DF (SACUBITRIL 97 MG/ VALSARTAN 103 MG), UNK
     Route: 048

REACTIONS (3)
  - Myocardial infarction [Unknown]
  - Drug interaction [Unknown]
  - Contraindicated product administered [Unknown]
